FAERS Safety Report 4997469-0 (Version None)
Quarter: 2006Q1

REPORT INFORMATION
  Report Type: 
  Country: None (occurrence: None)
  Receive Date: 20060315
  Receipt Date: 20051128
  Transmission Date: 20060701
  Serious: Yes (Other)
  Sender: FDA-Public Use
  Company Number: 427252

PATIENT
  Age: 64 Year
  Sex: Female

DRUGS (2)
  1. BONIVA [Suspect]
     Indication: OSTEOPOROSIS
     Dosage: 150 MG 1 PER MOUTH ORAL
     Route: 048
     Dates: start: 20051118, end: 20051118
  2. NEXIUM [Suspect]
     Indication: OSTEOPOROSIS

REACTIONS (8)
  - CHEST PAIN [None]
  - CHROMATURIA [None]
  - DYSPNOEA [None]
  - DYSURIA [None]
  - INFLUENZA LIKE ILLNESS [None]
  - MASS [None]
  - MUSCLE SPASMS [None]
  - PAIN [None]
